FAERS Safety Report 4636278-9 (Version None)
Quarter: 2005Q2

REPORT INFORMATION
  Report Type: 
  Country: None (occurrence: None)
  Receive Date: 20050415
  Receipt Date: 20040511
  Transmission Date: 20051028
  Serious: No
  Sender: FDA-Public Use
  Company Number: US-BRISTOL-MYERS SQUIBB COMPANY-12587010

PATIENT
  Age: 65 Year
  Sex: Female

DRUGS (6)
  1. CARBOPLATIN [Suspect]
     Indication: SMALL CELL LUNG CANCER STAGE UNSPECIFIED
     Route: 042
     Dates: start: 20040203, end: 20040203
  2. IRINOTECAN HCL [Suspect]
     Indication: SMALL CELL LUNG CANCER STAGE UNSPECIFIED
     Route: 042
     Dates: start: 20040203, end: 20040203
  3. ZOFRAN [Concomitant]
     Indication: PREMEDICATION
     Dates: start: 20040203
  4. DECADRON [Concomitant]
     Indication: PREMEDICATION
     Dates: start: 20040203
  5. ATIVAN [Concomitant]
     Indication: PREMEDICATION
     Dates: start: 20040203
  6. ZANTAC [Concomitant]
     Indication: PREMEDICATION
     Dates: start: 20040203

REACTIONS (2)
  - ERYTHEMA [None]
  - FLUSHING [None]
